FAERS Safety Report 6697708-4 (Version None)
Quarter: 2010Q2

REPORT INFORMATION
  Report Type: 
  Country: None (occurrence: None)
  Receive Date: 20100423
  Receipt Date: 20100416
  Transmission Date: 20101027
  Serious: Yes (Other)
  Sender: FDA-Public Use
  Company Number: 1000089

PATIENT
  Age: 45 Year
  Sex: Female

DRUGS (4)
  1. DULCOLAX [Suspect]
     Indication: COLONOSCOPY
     Dosage: 10MG/1X/PO
     Route: 048
     Dates: start: 20100405
  2. HALFLYTELY [Suspect]
     Indication: COLONOSCOPY
     Dosage: 2L/1X/PO
     Route: 048
     Dates: start: 20100405
  3. MULTI-VITAMINS [Concomitant]
  4. CALTARTE [Concomitant]

REACTIONS (1)
  - COLITIS ISCHAEMIC [None]
